FAERS Safety Report 21830751 (Version 1)
Quarter: 2023Q1

REPORT INFORMATION
  Report Type: Spontaneous
  Country: US (occurrence: None)
  Receive Date: 20230106
  Receipt Date: 20230106
  Transmission Date: 20230417
  Serious: No
  Sender: FDA-Public Use
  Company Number: None

PATIENT
  Age: 74 Year
  Sex: Male
  Weight: 89.18 kg

DRUGS (21)
  1. ABIRATERONE [Suspect]
     Active Substance: ABIRATERONE
     Indication: Prostate cancer
     Dosage: FREQUENCY : DAILY;?
     Route: 048
     Dates: start: 202206, end: 202301
  2. ADVAIR HFA [Concomitant]
     Active Substance: FLUTICASONE PROPIONATE\SALMETEROL XINAFOATE
  3. ALBUTEROL [Concomitant]
     Active Substance: ALBUTEROL
  4. ATORVASTATIN [Concomitant]
     Active Substance: ATORVASTATIN
  5. COVID-19 VACCINE [Concomitant]
  6. DITROPAN XL [Concomitant]
     Active Substance: OXYBUTYNIN CHLORIDE
  7. EPIPEN [Concomitant]
     Active Substance: EPINEPHRINE
  8. FLUBLOK [Concomitant]
     Active Substance: INFLUENZA A VIRUS A/CALIFORNIA/7/2009 (H1N1) RECOMBINANT HEMAGGLUTININ ANTIGEN\INFLUENZA A VIRUS A/V
  9. LISINOPRIL [Concomitant]
     Active Substance: LISINOPRIL
  10. LOSARTAN [Concomitant]
     Active Substance: LOSARTAN
  11. MELOXICAM [Concomitant]
     Active Substance: MELOXICAM
  12. MONTELUKAST [Concomitant]
     Active Substance: MONTELUKAST SODIUM
  13. HIGH DENSITY POLYETHYLENE [Concomitant]
     Active Substance: HIGH DENSITY POLYETHYLENE
  14. ETHYLENE GLYCOL [Concomitant]
     Active Substance: ETHYLENE GLYCOL
  15. PREDNISONE [Concomitant]
     Active Substance: PREDNISONE
  16. PROBIOTIC, [Concomitant]
  17. RELION [Concomitant]
  18. TAMSULOSIN [Concomitant]
     Active Substance: TAMSULOSIN
  19. VITAMIN C [Concomitant]
     Active Substance: ASCORBIC ACID
  20. VITAMIN D3 [Concomitant]
     Active Substance: CHOLECALCIFEROL
  21. ZOMETA [Concomitant]
     Active Substance: ZOLEDRONIC ACID

REACTIONS (1)
  - Disease progression [None]
